FAERS Safety Report 16648115 (Version 1)
Quarter: 2019Q3

REPORT INFORMATION
  Report Type: Spontaneous
  Country: IN (occurrence: IN)
  Receive Date: 20190730
  Receipt Date: 20190730
  Transmission Date: 20191004
  Serious: Yes (Hospitalization, Other)
  Sender: FDA-Public Use
  Company Number: IN-SEBELA IRELAND LIMITED-2019SEB00189

PATIENT
  Sex: Female

DRUGS (3)
  1. ATROPINE. [Suspect]
     Active Substance: ATROPINE
     Indication: ANAESTHESIA
     Dosage: 0.4 MG, ONCE
     Route: 013
     Dates: start: 20180101, end: 20180101
  2. PENTAZOCINE [Suspect]
     Active Substance: PENTAZOCINE
     Indication: ANAESTHESIA
     Dosage: 30 MG, ONCE
     Route: 013
     Dates: start: 20180101, end: 20180101
  3. PROMETHAZINE [Suspect]
     Active Substance: PROMETHAZINE HYDROCHLORIDE
     Indication: ANAESTHESIA
     Dosage: 25 MG, ONCE
     Route: 013
     Dates: start: 20180101, end: 20180101

REACTIONS (2)
  - Incorrect route of product administration [Recovered/Resolved]
  - Gangrene [Unknown]

NARRATIVE: CASE EVENT DATE: 20180101
